FAERS Safety Report 9914531 (Version 2)
Quarter: 2014Q1

REPORT INFORMATION
  Report Type: Report from Study
  Country: FR (occurrence: FR)
  Receive Date: 20140220
  Receipt Date: 20140319
  Transmission Date: 20141002
  Serious: Yes (Other)
  Sender: FDA-Public Use
  Company Number: FR-SA-2014SA017434

PATIENT
  Age: 64 Year
  Sex: Female

DRUGS (6)
  1. ALEMTUZUMAB [Suspect]
     Indication: B-CELL SMALL LYMPHOCYTIC LYMPHOMA
     Dosage: 3*30MG/WK THREE TIMES PER WEEK
     Route: 058
     Dates: start: 20130923
  2. ALEMTUZUMAB [Suspect]
     Indication: B-CELL SMALL LYMPHOCYTIC LYMPHOMA
     Dosage: 3*30MG/WK THREE TIMES PER WEEK
     Route: 058
     Dates: start: 20130923
  3. ALEMTUZUMAB [Suspect]
     Indication: B-CELL SMALL LYMPHOCYTIC LYMPHOMA
     Dosage: 2 INFUSIONS WEEKLY
     Route: 058
     Dates: end: 20131209
  4. ALEMTUZUMAB [Suspect]
     Indication: B-CELL SMALL LYMPHOCYTIC LYMPHOMA
     Dosage: 2 INFUSIONS WEEKLY
     Route: 058
     Dates: end: 20131209
  5. ZELITREX [Concomitant]
     Indication: ANTIVIRAL PROPHYLAXIS
     Dosage: FOR MORE THAN ONE YEAR
  6. BACTRIM FORTE [Concomitant]
     Indication: ANTIFUNGAL PROPHYLAXIS
     Dosage: 1 TABLET THREE TIMES DAILY FOR LESS THAN ONE YEAR
     Route: 048

REACTIONS (3)
  - Disease progression [Unknown]
  - Drug ineffective [Unknown]
  - Cytomegalovirus infection [Recovered/Resolved]
